FAERS Safety Report 9107315 (Version 1)
Quarter: 2013Q1

REPORT INFORMATION
  Report Type: Spontaneous
  Country: JP (occurrence: JP)
  Receive Date: 20130221
  Receipt Date: 20130221
  Transmission Date: 20140127
  Serious: Yes (Other)
  Sender: FDA-Public Use
  Company Number: JP-WATSON-2013-02760

PATIENT
  Age: 25 Year
  Sex: Female

DRUGS (6)
  1. ETOPOSIDE [Suspect]
     Indication: METASTASES TO LUNG
     Dosage: UNK, UNKNOWN
     Route: 065
  2. CYCLOPHOSPHAMIDE [Suspect]
     Indication: METASTASES TO LUNG
     Dosage: UNK, UNKNOWN
     Route: 065
  3. DOXORUBICIN [Suspect]
     Indication: METASTASES TO LUNG
     Dosage: UNK, UNKNOWN
     Route: 065
  4. CISPLATIN [Suspect]
     Indication: METASTASES TO LUNG
     Dosage: UNK, UNKNOWN
     Route: 065
  5. VINCRISTINE [Suspect]
     Indication: METASTASES TO LUNG
     Dosage: UNK, UNKNOWN
     Route: 065
  6. DACARBAZINE [Suspect]
     Indication: METASTASES TO LUNG
     Dosage: UNK, UNKNOWN
     Route: 065

REACTIONS (6)
  - Ganglioneuroma [Unknown]
  - Vasoactive intestinal polypeptide increased [Not Recovered/Not Resolved]
  - Diarrhoea [Not Recovered/Not Resolved]
  - Hypokalaemia [Not Recovered/Not Resolved]
  - Achlorhydria [Unknown]
  - Weight decreased [None]
